FAERS Safety Report 17815652 (Version 1)
Quarter: 2020Q2

REPORT INFORMATION
  Report Type: Spontaneous
  Country: US (occurrence: US)
  Receive Date: 20200521
  Receipt Date: 20200521
  Transmission Date: 20200714
  Serious: Yes (Other)
  Sender: FDA-Public Use
  Company Number: None

PATIENT
  Age: 67 Year
  Sex: Male

DRUGS (12)
  1. SILDENAFIL. [Concomitant]
     Active Substance: SILDENAFIL
  2. LORAZEPAM. [Concomitant]
     Active Substance: LORAZEPAM
  3. AMBRISENTAN 10MG TABLETS 30/BO: 10MG [Suspect]
     Active Substance: AMBRISENTAN
     Indication: PULMONARY ARTERIAL HYPERTENSION
     Route: 048
     Dates: start: 201301
  4. AMIODARONE [Concomitant]
     Active Substance: AMIODARONE
  5. WARFARIN [Concomitant]
     Active Substance: WARFARIN
  6. VELETRI [Concomitant]
     Active Substance: EPOPROSTENOL
  7. DICLOFENAC TOP GEL [Concomitant]
  8. PRAVASTATIN. [Concomitant]
     Active Substance: PRAVASTATIN
  9. LIDIOCAINE VISCOUS [Concomitant]
  10. NARCAN [Concomitant]
     Active Substance: NALOXONE HYDROCHLORIDE
  11. TERAZOSIN [Concomitant]
     Active Substance: TERAZOSIN HYDROCHLORIDE
  12. FERROUS FUMARATE [Concomitant]
     Active Substance: FERROUS FUMARATE

REACTIONS (1)
  - Anxiety [None]

NARRATIVE: CASE EVENT DATE: 20200421
